FAERS Safety Report 25106404 (Version 1)
Quarter: 2025Q1

REPORT INFORMATION
  Report Type: Spontaneous
  Country: US (occurrence: US)
  Receive Date: 20250321
  Receipt Date: 20250321
  Transmission Date: 20250408
  Serious: No
  Sender: Pyros Pharmaceuticals
  Company Number: US-PYROS PHARMACEUTICALS, INC-20250300662

PATIENT
  Age: 2 Year
  Sex: Male
  Weight: 13.605 kg

DRUGS (5)
  1. VIGAFYDE [Suspect]
     Active Substance: VIGABATRIN
     Indication: Seizure
     Route: 065
     Dates: start: 20250222, end: 20250224
  2. VIGAFYDE [Suspect]
     Active Substance: VIGABATRIN
     Indication: Muscle spasms
     Route: 065
     Dates: start: 20250225, end: 20250227
  3. VIGAFYDE [Suspect]
     Active Substance: VIGABATRIN
     Route: 065
     Dates: start: 20250228
  4. KEPPRA [Concomitant]
     Active Substance: LEVETIRACETAM
     Indication: Product used for unknown indication
     Route: 065
  5. TOPIRAMATE [Concomitant]
     Active Substance: TOPIRAMATE
     Indication: Product used for unknown indication
     Route: 065

REACTIONS (1)
  - Insomnia [Not Recovered/Not Resolved]

NARRATIVE: CASE EVENT DATE: 20250201
